FAERS Safety Report 11175255 (Version 1)
Quarter: 2015Q2

REPORT INFORMATION
  Report Type: Spontaneous
  Country: US (occurrence: None)
  Receive Date: 20150608
  Receipt Date: 20150608
  Transmission Date: 20150821
  Serious: Yes (Other)
  Sender: FDA-Public Use
  Company Number: None

PATIENT
  Age: 50 Year
  Sex: Female
  Weight: 90.72 kg

DRUGS (7)
  1. PAXIL [Concomitant]
     Active Substance: PAROXETINE HYDROCHLORIDE
  2. VITAMIN C [Concomitant]
     Active Substance: ASCORBIC ACID
  3. FLAXSEED [Concomitant]
     Active Substance: FLAX SEED
  4. XANAX [Concomitant]
     Active Substance: ALPRAZOLAM
  5. VITAMIN D [Concomitant]
     Active Substance: CHOLECALCIFEROL
  6. MULTIVITAMIN [Concomitant]
     Active Substance: VITAMINS
  7. OTEZLA [Suspect]
     Active Substance: APREMILAST
     Indication: PSORIASIS
     Dosage: 1 TABLET 3 X PER DAY BY MOUTH?1 TABLET 2 X PER DAY BY MOUTH
     Dates: start: 20150117, end: 20150129

REACTIONS (8)
  - Anal pruritus [None]
  - Diarrhoea [None]
  - Skin exfoliation [None]
  - Inflammation [None]
  - Pain [None]
  - Pruritus generalised [None]
  - Diarrhoea haemorrhagic [None]
  - Pruritus genital [None]

NARRATIVE: CASE EVENT DATE: 20150202
